FAERS Safety Report 5469868-4 (Version None)
Quarter: 2007Q3

REPORT INFORMATION
  Report Type: 
  Country: None (occurrence: None)
  Receive Date: 20070927
  Receipt Date: 20070919
  Transmission Date: 20080115
  Serious: Yes (Hospitalization)
  Sender: FDA-Public Use
  Company Number: US-JNJFOC-20070904325

PATIENT
  Sex: Male
  Weight: 55.34 kg

DRUGS (3)
  1. REMICADE [Suspect]
     Indication: COLITIS ULCERATIVE
     Route: 042
  2. DECADRON [Concomitant]
     Indication: COLITIS ULCERATIVE
  3. ASACOL [Concomitant]
     Indication: COLITIS ULCERATIVE

REACTIONS (3)
  - ABDOMINAL PAIN [None]
  - DIARRHOEA HAEMORRHAGIC [None]
  - WEIGHT DECREASED [None]
